FAERS Safety Report 6194500-4 (Version None)
Quarter: 2009Q2

REPORT INFORMATION
  Report Type: 
  Country: None (occurrence: None)
  Receive Date: 20090519
  Receipt Date: 20090512
  Transmission Date: 20091009
  Serious: Yes (Other)
  Sender: FDA-Public Use
  Company Number: BR-JNJFOC-20090503217

PATIENT
  Age: 62 Year
  Sex: Male

DRUGS (5)
  1. HALOPERIDOL [Suspect]
     Indication: PSYCHOTIC DISORDER
     Route: 065
  2. DIAZEPAM [Suspect]
     Indication: MENTAL DISORDER
     Route: 065
  3. PROMETHAZINE [Suspect]
     Indication: MENTAL DISORDER
     Route: 065
  4. CAPTOPRIL [Concomitant]
     Indication: HYPERTENSION
     Route: 065
  5. HYDROCHLOROTHIAZIDE [Concomitant]
     Indication: HYPERTENSION
     Route: 065

REACTIONS (1)
  - MEGACOLON [None]
